FAERS Safety Report 23111718 (Version 1)
Quarter: 2023Q4

REPORT INFORMATION
  Report Type: Spontaneous
  Country: FR (occurrence: FR)
  Receive Date: 20231026
  Receipt Date: 20231026
  Transmission Date: 20240110
  Serious: Yes (Hospitalization)
  Sender: FDA-Public Use
  Company Number: None

PATIENT
  Age: 1 Year
  Sex: Male
  Weight: 9 kg

DRUGS (7)
  1. CEFEPIME [Suspect]
     Active Substance: CEFEPIME HYDROCHLORIDE
     Indication: Arthritis bacterial
     Dosage: 150 MILLIGRAM/KILOGRAM, QD
     Route: 042
     Dates: start: 20230320
  2. CLINDAMYCIN [Suspect]
     Active Substance: CLINDAMYCIN
     Indication: Arthritis bacterial
     Dosage: 40 MILLIGRAM/KILOGRAM, QD
     Route: 042
     Dates: start: 20230310, end: 20230313
  3. AUGMENTIN [Suspect]
     Active Substance: AMOXICILLIN\CLAVULANATE POTASSIUM
     Indication: Arthritis bacterial
     Dosage: 1500 MILLIGRAM, QD (500 MG X3/D)
     Route: 042
     Dates: start: 20230310, end: 20230313
  4. AUGMENTIN [Suspect]
     Active Substance: AMOXICILLIN\CLAVULANATE POTASSIUM
     Dosage: NOT SPECIFIED
     Route: 042
     Dates: start: 20230313, end: 20230404
  5. BACTRIM [Suspect]
     Active Substance: SULFAMETHOXAZOLE\TRIMETHOPRIM
     Indication: Arthritis bacterial
     Dosage: 15 MILLIGRAM/KILOGRAM, QD
     Route: 048
     Dates: start: 20230320, end: 20230323
  6. CILASTATIN SODIUM\IMIPENEM [Suspect]
     Active Substance: CILASTATIN SODIUM\IMIPENEM
     Indication: Arthritis bacterial
     Dosage: 60 MILLIGRAM/KILOGRAM, QD
     Route: 048
     Dates: start: 20230321, end: 20230321
  7. ZOVIRAX [Suspect]
     Active Substance: ACYCLOVIR
     Indication: Varicella
     Dosage: 1300 MILLIGRAM, QD (100 MG X3/D)
     Route: 042
     Dates: start: 20230310, end: 20230317

REACTIONS (1)
  - Neutropenia [Recovered/Resolved]

NARRATIVE: CASE EVENT DATE: 20230322
